FAERS Safety Report 22039932 (Version 1)
Quarter: 2023Q1

REPORT INFORMATION
  Report Type: Spontaneous
  Country: FR (occurrence: FR)
  Receive Date: 20230227
  Receipt Date: 20230227
  Transmission Date: 20230418
  Serious: Yes (Hospitalization, Disabling, Other)
  Sender: FDA-Public Use
  Company Number: None

PATIENT
  Age: 36 Year

DRUGS (11)
  1. IOPAMIDOL [Suspect]
     Active Substance: IOPAMIDOL
     Indication: Discogram
     Dosage: 10 ML,1X
     Route: 024
     Dates: start: 20170627, end: 20170627
  2. IOPAMIDOL [Suspect]
     Active Substance: IOPAMIDOL
     Indication: Discogram
     Dosage: 10 ML, SINGLE
     Route: 024
     Dates: start: 20170626, end: 20170626
  3. LIDOCAINE HYDROCHLORIDE [Suspect]
     Active Substance: LIDOCAINE HYDROCHLORIDE
     Indication: Anaesthesia
     Dosage: 10 DF, QD
     Route: 058
     Dates: start: 20170626, end: 20170626
  4. LIDOCAINE HYDROCHLORIDE [Suspect]
     Active Substance: LIDOCAINE HYDROCHLORIDE
     Indication: Discogram
  5. LIDOCAINE HYDROCHLORIDE [Suspect]
     Active Substance: LIDOCAINE HYDROCHLORIDE
     Indication: Anaesthesia
     Dosage: 10 DF, QD
     Route: 058
     Dates: start: 20170627, end: 20170627
  6. LIDOCAINE HYDROCHLORIDE [Suspect]
     Active Substance: LIDOCAINE HYDROCHLORIDE
     Indication: Discogram
  7. PREDNISOLONE [Suspect]
     Active Substance: PREDNISOLONE
     Indication: Back pain
     Dosage: 1 ML, 1X
     Route: 024
     Dates: start: 20170626, end: 20170626
  8. PREDNISOLONE [Suspect]
     Active Substance: PREDNISOLONE
     Indication: Back pain
     Dosage: 1 ML
     Route: 024
     Dates: start: 20170627, end: 20170627
  9. LIDOCAINE [Concomitant]
     Active Substance: LIDOCAINE
     Dosage: UNK
  10. PREGABALIN [Concomitant]
     Active Substance: PREGABALIN
     Dosage: UNK,2 TABLETS PER DAY FOR A
  11. LACTULOSE\PARAFFIN [Concomitant]
     Active Substance: LACTULOSE\PARAFFIN
     Dosage: UNK,1 BOX PER MONTH,

REACTIONS (10)
  - Bladder dysfunction [Not Recovered/Not Resolved]
  - Motor dysfunction [Not Recovered/Not Resolved]
  - Pain in extremity [Unknown]
  - Paraplegia [Not Recovered/Not Resolved]
  - Paraplegia [Not Recovered/Not Resolved]
  - Burning sensation [Not Recovered/Not Resolved]
  - Pelvic pain [Unknown]
  - Spinal pain [Unknown]
  - Spinal cord ischaemia [Unknown]
  - Sensory loss [Not Recovered/Not Resolved]

NARRATIVE: CASE EVENT DATE: 20170627
